FAERS Safety Report 20080210 (Version 2)
Quarter: 2021Q4

REPORT INFORMATION
  Report Type: Report from Study
  Country: CN (occurrence: CN)
  Receive Date: 20211117
  Receipt Date: 20211206
  Transmission Date: 20220303
  Serious: Yes (Other)
  Sender: FDA-Public Use
  Company Number: CN-ELI_LILLY_AND_COMPANY-CN202111003878

PATIENT
  Age: 64 Year
  Sex: Female

DRUGS (3)
  1. HUMALOG [Suspect]
     Active Substance: INSULIN LISPRO
     Indication: Diabetes mellitus
     Dosage: 14 U, DAILY (AT NOON )
     Route: 058
     Dates: start: 20211029
  2. HUMALOG [Suspect]
     Active Substance: INSULIN LISPRO
     Dosage: 12 U, EACH EVENING
     Route: 058
     Dates: start: 20211029
  3. LINAGLIPTIN [Concomitant]
     Active Substance: LINAGLIPTIN
     Indication: Diabetes mellitus
     Dosage: 1 DOSAGE FORM, DAILY (QD)
     Route: 048

REACTIONS (6)
  - Swelling [Not Recovered/Not Resolved]
  - Swelling face [Unknown]
  - Swelling of eyelid [Unknown]
  - Headache [Unknown]
  - Pyrexia [Unknown]
  - Hypersensitivity [Not Recovered/Not Resolved]
